FAERS Safety Report 5287584-9 (Version None)
Quarter: 2007Q1

REPORT INFORMATION
  Report Type: 
  Country: None (occurrence: None)
  Receive Date: 20070126
  Receipt Date: 20050729
  Transmission Date: 20070707
  Serious: No
  Sender: FDA-Public Use
  Company Number: 2006CT001153

PATIENT
  Age: 55 Year
  Sex: Female
  Weight: 44.9 kg

DRUGS (12)
  1. VENTAVIS [Suspect]
     Indication: PULMONARY HYPERTENSION
     Dosage: 2.5 UG; 4XD INH
     Route: 055
     Dates: start: 20050608, end: 20050717
  2. COSOPT [Concomitant]
  3. PRED FORTE [Concomitant]
  4. PREVACID [Concomitant]
  5. PREDNISONE TAB [Concomitant]
  6. ASCORBIC ACID [Concomitant]
  7. COQ10 [Concomitant]
  8. IRON [Concomitant]
  9. LEXAPRO [Concomitant]
  10. SPIROLACTONE [Concomitant]
  11. TRACLEER [Concomitant]
  12. LASIX [Concomitant]

REACTIONS (5)
  - CHILLS [None]
  - COUGH [None]
  - MYALGIA [None]
  - RASH [None]
  - VOMITING [None]
